FAERS Safety Report 9476642 (Version 1)
Quarter: 2013Q3

REPORT INFORMATION
  Report Type: Spontaneous
  Country: IT (occurrence: IT)
  Receive Date: 20130826
  Receipt Date: 20130826
  Transmission Date: 20140515
  Serious: Yes (Other)
  Sender: FDA-Public Use
  Company Number: PHHY2013IT091398

PATIENT
  Age: 86 Year
  Sex: Male

DRUGS (4)
  1. METFORMIN [Suspect]
     Dosage: 1500 MG, QD
     Route: 048
     Dates: start: 20120501, end: 20130430
  2. SOLOSA [Suspect]
     Dosage: 1 DF, QD
     Route: 048
     Dates: start: 20120501, end: 20130430
  3. FUROSEMIDE [Concomitant]
  4. LANZOPRAZOL [Concomitant]

REACTIONS (1)
  - Hypoglycaemic coma [Recovering/Resolving]
